FAERS Safety Report 9378989 (Version 1)
Quarter: 2013Q3

REPORT INFORMATION
  Report Type: Spontaneous
  Country: US (occurrence: US)
  Receive Date: 20130702
  Receipt Date: 20130702
  Transmission Date: 20140515
  Serious: Yes (Other)
  Sender: FDA-Public Use
  Company Number: US-SANOFI-AVENTIS-2013SA066016

PATIENT
  Age: 79 Year
  Sex: Male

DRUGS (4)
  1. APIDRA SOLOSTAR [Suspect]
     Indication: PRODUCT USED FOR UNKNOWN INDICATION
     Dosage: DOSE:14 UNIT(S)
     Route: 058
     Dates: start: 20130625
  2. SOLOSTAR [Suspect]
     Dates: start: 20130625
  3. LANTUS SOLOSTAR [Suspect]
     Route: 058
  4. SOLOSTAR [Suspect]

REACTIONS (1)
  - Cataract [Unknown]
